FAERS Safety Report 6590144-0 (Version None)
Quarter: 2010Q1

REPORT INFORMATION
  Report Type: 
  Country: None (occurrence: None)
  Receive Date: 20100219
  Receipt Date: 20100210
  Transmission Date: 20100710
  Serious: Yes (Other)
  Sender: FDA-Public Use
  Company Number: US-BAYER-201016079GPV

PATIENT

DRUGS (2)
  1. SORAFENIB [Suspect]
     Indication: METASTATIC RENAL CELL CARCINOMA
     Route: 048
  2. INTERFERON-ALFA 2B [Suspect]
     Indication: METASTATIC RENAL CELL CARCINOMA
     Dosage: 0.5 MU
     Route: 058

REACTIONS (1)
  - SYNCOPE [None]
